FAERS Safety Report 18767840 (Version 1)
Quarter: 2021Q1

REPORT INFORMATION
  Report Type: Spontaneous
  Country: US (occurrence: US)
  Receive Date: 20210121
  Receipt Date: 20210121
  Transmission Date: 20210419
  Serious: Yes (Disabling, Other)
  Sender: FDA-Public Use
  Company Number: US-REGENERON PHARMACEUTICALS, INC.-2021-14187

PATIENT

DRUGS (2)
  1. EYLEA [Suspect]
     Active Substance: AFLIBERCEPT
     Indication: EYE LASER SURGERY
     Dosage: UNK
     Route: 031
     Dates: start: 2020, end: 2020
  2. EYLEA [Suspect]
     Active Substance: AFLIBERCEPT
     Indication: EYE PAIN
     Dosage: IN THE LEFT EYE
     Route: 031

REACTIONS (3)
  - Blindness transient [Unknown]
  - Visual impairment [Not Recovered/Not Resolved]
  - Off label use [Unknown]

NARRATIVE: CASE EVENT DATE: 2020
